FAERS Safety Report 18022744 (Version 1)
Quarter: 2020Q3

REPORT INFORMATION
  Report Type: Spontaneous
  Country: JP (occurrence: JP)
  Receive Date: 20200714
  Receipt Date: 20200714
  Transmission Date: 20201103
  Serious: Yes (Other)
  Sender: FDA-Public Use
  Company Number: JP-PURDUE-GBR-2020-0077784

PATIENT
  Sex: Male

DRUGS (2)
  1. NORSPAN [Suspect]
     Active Substance: BUPRENORPHINE
     Indication: PRODUCT USED FOR UNKNOWN INDICATION
     Dosage: 20 MCG, Q1H
     Route: 062
     Dates: end: 202006
  2. NORSPAN [Suspect]
     Active Substance: BUPRENORPHINE
     Dosage: UNK
     Route: 062

REACTIONS (2)
  - Inadequate analgesia [Unknown]
  - Delirium [Unknown]
